FAERS Safety Report 9968115 (Version 1)
Quarter: 2014Q1

REPORT INFORMATION
  Report Type: Report from Study
  Country: US (occurrence: US)
  Receive Date: 20140306
  Receipt Date: 20140306
  Transmission Date: 20141002
  Serious: No
  Sender: FDA-Public Use
  Company Number: US-ABBVIE-13P-163-1144455-00

PATIENT
  Age: 30 Year
  Sex: Female

DRUGS (5)
  1. HUMIRA [Suspect]
     Indication: PSORIATIC ARTHROPATHY
     Dates: start: 201210
  2. HUMIRA [Suspect]
  3. LISINOPRIL [Concomitant]
     Indication: HYPERTENSION
     Dosage: 10 MG DAILY
  4. CLARITIN [Concomitant]
     Indication: HYPERSENSITIVITY
  5. FLUOXETINE [Concomitant]
     Indication: PANIC ATTACK
     Dosage: 20 MG DAILY

REACTIONS (3)
  - Injection site pain [Recovering/Resolving]
  - Psoriasis [Unknown]
  - Sinusitis [Recovered/Resolved]
